FAERS Safety Report 20454814 (Version 1)
Quarter: 2022Q1

REPORT INFORMATION
  Report Type: Spontaneous
  Country: DE (occurrence: DE)
  Receive Date: 20220210
  Receipt Date: 20220210
  Transmission Date: 20220424
  Serious: Yes (Hospitalization)
  Sender: FDA-Public Use
  Company Number: DE-PFIZER INC-2021468314

PATIENT
  Age: 84 Year
  Sex: Male

DRUGS (5)
  1. METHOTREXATE SODIUM [Suspect]
     Active Substance: METHOTREXATE SODIUM
     Indication: Rheumatoid arthritis
     Dosage: 10 MG, WEEKLY
  2. METHOTREXATE SODIUM [Suspect]
     Active Substance: METHOTREXATE SODIUM
     Dosage: ALTERNATING 1X 10 MG AND 2X 10 MG PER WEEK
  3. METHOTREXATE SODIUM [Suspect]
     Active Substance: METHOTREXATE SODIUM
     Dosage: 12.5 MG, WEEKLY
  4. METHOTREXATE SODIUM [Suspect]
     Active Substance: METHOTREXATE SODIUM
     Dosage: 10 MG, 2X/WEEK
  5. ALENDRONIC ACID [Concomitant]
     Active Substance: ALENDRONIC ACID

REACTIONS (6)
  - Mouth swelling [Unknown]
  - Haemoptysis [Unknown]
  - Tongue rough [Unknown]
  - Memory impairment [Unknown]
  - Therapeutic product effect decreased [Unknown]
  - Intentional product misuse [Unknown]
